FAERS Safety Report 6398226-3 (Version None)
Quarter: 2009Q4

REPORT INFORMATION
  Report Type: 
  Country: None (occurrence: None)
  Receive Date: 20091013
  Receipt Date: 20091009
  Transmission Date: 20100525
  Serious: Yes (Death)
  Sender: FDA-Public Use
  Company Number: PHHY2009GB43701

PATIENT
  Sex: Male

DRUGS (3)
  1. CLOZARIL [Suspect]
     Indication: SCHIZOPHRENIA
     Dosage: UNK
     Dates: start: 19990716, end: 20041117
  2. CLOZARIL [Suspect]
     Dosage: UNK
     Dates: start: 20090622
  3. CLOZAPINE (DENZAPINE) [Suspect]
     Indication: SCHIZOPHRENIA

REACTIONS (1)
  - DEATH [None]
